FAERS Safety Report 4389592-9 (Version None)
Quarter: 2004Q3

REPORT INFORMATION
  Report Type: 
  Country: None (occurrence: None)
  Receive Date: 20040702
  Receipt Date: 20040622
  Transmission Date: 20050211
  Serious: Yes (Hospitalization)
  Sender: FDA-Public Use
  Company Number: DK-MERCK-0406DNK00014B1

PATIENT
  Age: 0 Day
  Sex: Female

DRUGS (1)
  1. ALDOMET [Suspect]
     Indication: HYPERTENSION
     Dates: start: 20030601, end: 20040221

REACTIONS (3)
  - DRUG EXPOSURE VIA BREAST MILK [None]
  - LATE DEVELOPER [None]
  - LISTLESS [None]
